FAERS Safety Report 4443203-2 (Version None)
Quarter: 2004Q3

REPORT INFORMATION
  Report Type: 
  Country: None (occurrence: None)
  Receive Date: 20040907
  Receipt Date: 20040907
  Transmission Date: 20050211
  Serious: No
  Sender: FDA-Public Use
  Company Number: None

PATIENT
  Sex: Female
  Weight: 73 kg

DRUGS (10)
  1. ETOPOSIDE [Suspect]
     Indication: EWING'S SARCOMA
     Dosage: 275 MG   DAILY X 3   INTRAVENOUS
     Route: 042
     Dates: start: 20040714, end: 20040716
  2. DEXAMETHASONE [Concomitant]
  3. DOXORUBICIN HCL [Concomitant]
  4. GLUTAMINE [Concomitant]
  5. GRANISITRON [Concomitant]
  6. IFOSFAMIDE [Concomitant]
  7. LANSOPRAZOLE [Concomitant]
  8. MESNA [Concomitant]
  9. SUCRALFATE [Concomitant]
  10. VINCRISTINE [Concomitant]

REACTIONS (2)
  - DIZZINESS [None]
  - HYPOTENSION [None]
